FAERS Safety Report 6657299-0 (Version None)
Quarter: 2010Q1

REPORT INFORMATION
  Report Type: 
  Country: None (occurrence: None)
  Receive Date: 20100325
  Receipt Date: 20100312
  Transmission Date: 20100710
  Serious: Yes (Hospitalization, Other)
  Sender: FDA-Public Use
  Company Number: 2009SP035418

PATIENT
  Sex: Male
  Weight: 3.7422 kg

DRUGS (2)
  1. NUVARING [Suspect]
     Indication: DRUG EXPOSURE DURING PREGNANCY
     Dosage: TRPL
     Route: 064
  2. BETASERON [Suspect]
     Indication: DRUG EXPOSURE DURING PREGNANCY
     Dosage: TRPL
     Route: 064

REACTIONS (11)
  - BLOOD CALCIUM DECREASED [None]
  - CONGENITAL ANOMALY [None]
  - DYSPNOEA [None]
  - LARGE FOR DATES BABY [None]
  - LUNG DISORDER [None]
  - MATERNAL DRUGS AFFECTING FOETUS [None]
  - MEDICATION ERROR [None]
  - NEONATAL RESPIRATORY DISTRESS SYNDROME [None]
  - PLAGIOCEPHALY [None]
  - PREMATURE BABY [None]
  - RIB DEFORMITY [None]
